FAERS Safety Report 8291387-0 (Version None)
Quarter: 2012Q2

REPORT INFORMATION
  Report Type: 
  Country: None (occurrence: None)
  Receive Date: 20120417
  Receipt Date: 20120412
  Transmission Date: 20120825
  Serious: Yes (Hospitalization)
  Sender: FDA-Public Use
  Company Number: US-GLAXOSMITHKLINE-B0699912A

PATIENT
  Age: 74 Year
  Sex: Male
  Weight: 98.6 kg

DRUGS (9)
  1. ALBUTEROL [Concomitant]
  2. FLOMAX [Concomitant]
  3. TOPROL-XL [Concomitant]
  4. AVANDIA [Suspect]
     Indication: TYPE 2 DIABETES MELLITUS
     Dosage: 4MG TWICE PER DAY
     Route: 048
     Dates: start: 20010101, end: 20050101
  5. CADUET [Concomitant]
  6. PROSCAR [Concomitant]
  7. JANUVIA [Concomitant]
  8. AVANDAMET [Suspect]
     Indication: TYPE 2 DIABETES MELLITUS
     Route: 048
     Dates: start: 20050101, end: 20090301
  9. GLIPIZIDE [Concomitant]

REACTIONS (3)
  - CARDIAC FAILURE CONGESTIVE [None]
  - SICK SINUS SYNDROME [None]
  - ATRIAL FIBRILLATION [None]
